FAERS Safety Report 9704403 (Version 1)
Quarter: 2013Q4

REPORT INFORMATION
  Report Type: Report from Study
  Country: BR (occurrence: BR)
  Receive Date: 20131122
  Receipt Date: 20131122
  Transmission Date: 20140711
  Serious: Yes (Other)
  Sender: FDA-Public Use
  Company Number: PHHY2013BR134239

PATIENT
  Sex: Female
  Weight: 85 kg

DRUGS (11)
  1. DIOVAN [Suspect]
     Indication: HYPERTENSION
     Dosage: 320 MG, DAILY
     Route: 048
     Dates: start: 2000
  2. HYDROCHLOROTHIAZIDE [Concomitant]
     Indication: BLOOD PRESSURE ABNORMAL
     Dosage: 12.5 MG, UNK
     Dates: start: 1980
  3. PRESSAT [Concomitant]
     Indication: CARDIOVASCULAR EVENT PROPHYLAXIS
     Dosage: 2.5 MG, UNK
  4. COLECALCIFEROL [Concomitant]
     Indication: OSTEOPENIA
     Dosage: 30000 U, QMO
     Dates: start: 2001
  5. LACTOSE [Concomitant]
     Indication: LACTOSE INTOLERANCE
     Dosage: 200 MG, UNK
  6. EUTIROX [Concomitant]
     Indication: THYROID DISORDER
     Dosage: 50 UG, UNK
     Dates: start: 2001
  7. RABEPRAZOLE [Concomitant]
     Indication: ABDOMINAL DISCOMFORT
     Dosage: UNK UKN, UNK
     Dates: start: 2001
  8. CYCLOBENZAPRINE HYDROCHLORIDE [Concomitant]
     Indication: FIBROMYALGIA
     Dosage: 10 MG, UNK
     Dates: start: 2008
  9. ATORVASTATIN [Concomitant]
     Indication: BLOOD CHOLESTEROL ABNORMAL
     Dosage: 10 MG, UNK
  10. ROSULFAN [Concomitant]
     Indication: BLOOD CHOLESTEROL ABNORMAL
     Dosage: 10 MG, UNK
  11. CALCIUM + VIT D [Concomitant]
     Indication: OSTEOPENIA
     Dosage: UNK UKN, UNK

REACTIONS (2)
  - Parathyroid tumour [Recovered/Resolved]
  - Pituitary tumour [Recovered/Resolved]
